FAERS Safety Report 16945973 (Version 3)
Quarter: 2020Q1

REPORT INFORMATION
  Report Type: Spontaneous
  Country: CH (occurrence: CH)
  Receive Date: 20191022
  Receipt Date: 20200103
  Transmission Date: 20200409
  Serious: Yes (Death, Hospitalization, Other)
  Sender: FDA-Public Use
  Company Number: CH-SA-2019SA291998

PATIENT
  Age: 62 Year
  Sex: Male
  Weight: 63 kg

DRUGS (19)
  1. MYDOCALM [TOLPERISONE HYDROCHLORIDE] [Concomitant]
     Active Substance: TOLPERISONE HYDROCHLORIDE
     Dosage: UNK UNK, TID
  2. PREDNISONE. [Concomitant]
     Active Substance: PREDNISONE
     Dosage: 60 MG/DL
     Dates: start: 20190916
  3. CHIROCAINE [Concomitant]
     Active Substance: LEVOBUPIVACAINE HYDROCHLORIDE
  4. DEXAMETHASONE. [Concomitant]
     Active Substance: DEXAMETHASONE
  5. IMUREK [AZATHIOPRINE SODIUM] [Concomitant]
  6. TARGIN [Concomitant]
     Active Substance: NALOXONE HYDROCHLORIDE\OXYCODONE HYDROCHLORIDE
     Route: 048
  7. PANTOZOLE [Concomitant]
     Active Substance: PANTOPRAZOLE SODIUM
     Indication: DYSPEPSIA
     Dosage: 1 DF, QD
  8. CLEXANE [Concomitant]
     Active Substance: ENOXAPARIN SODIUM
  9. OXYNORM [Concomitant]
     Active Substance: OXYCODONE HYDROCHLORIDE
  10. NOVALGIN (METAMIZOLE SODIUM) [Concomitant]
     Active Substance: METAMIZOLE SODIUM
     Indication: PAIN
  11. KENACORT A-40 [Concomitant]
     Active Substance: TRIAMCINOLONE ACETONIDE
  12. LYRICA [Concomitant]
     Active Substance: PREGABALIN
     Dosage: 2 DF, BID
     Route: 048
  13. AZATHIOPRINE. [Concomitant]
     Active Substance: AZATHIOPRINE
     Dosage: UNK
     Dates: start: 20190920
  14. CHIROCAINE [Concomitant]
     Active Substance: LEVOBUPIVACAINE HYDROCHLORIDE
  15. AUBAGIO [Suspect]
     Active Substance: TERIFLUNOMIDE
     Indication: RELAPSING-REMITTING MULTIPLE SCLEROSIS
     Dosage: UNK
     Dates: start: 20150629, end: 20190819
  16. BRUFEN [IBUPROFEN SODIUM] [Concomitant]
     Dosage: UNK, TID
     Route: 048
  17. KEFZOL [Concomitant]
     Active Substance: CEFAZOLIN SODIUM
  18. AMINOPYRIDINE [Concomitant]
     Active Substance: DALFAMPRIDINE
     Dosage: 1 DF, BID
  19. LOPAMIRO [Concomitant]
     Active Substance: IOPAMIDOL

REACTIONS (10)
  - Autoimmune hepatitis [Fatal]
  - Scoliosis [Unknown]
  - Spinal osteoarthritis [Unknown]
  - Nausea [Fatal]
  - Liver function test increased [Fatal]
  - Decreased appetite [Fatal]
  - Hypovolaemic shock [Fatal]
  - Fatigue [Fatal]
  - Gastrointestinal haemorrhage [Fatal]
  - Jaundice [Fatal]

NARRATIVE: CASE EVENT DATE: 2015
